FAERS Safety Report 6292167-8 (Version None)
Quarter: 2009Q3

REPORT INFORMATION
  Report Type: 
  Country: None (occurrence: None)
  Receive Date: 20090727
  Receipt Date: 20090727
  Transmission Date: 20100115
  Serious: Yes (Other)
  Sender: FDA-Public Use
  Company Number: None

PATIENT
  Sex: Female

DRUGS (1)
  1. DURAGESIC-50 [Suspect]
     Indication: PAIN
     Dosage: 50 MG CHANGE PATCH OF 72 HOURS INDEFINITEY

REACTIONS (2)
  - DERMATITIS ALLERGIC [None]
  - PRODUCT SUBSTITUTION ISSUE [None]
